FAERS Safety Report 5390632-9 (Version None)
Quarter: 2007Q3

REPORT INFORMATION
  Report Type: 
  Country: None (occurrence: None)
  Receive Date: 20070712
  Receipt Date: 20070604
  Transmission Date: 20080115
  Serious: Yes (Life-Threatening)
  Sender: FDA-Public Use
  Company Number: 6034709

PATIENT
  Age: 59 Year
  Sex: Female

DRUGS (7)
  1. CIPROFLOXACIN [Suspect]
     Indication: CHOLECYSTITIS
     Dosage: (500 MG)
     Route: 048
     Dates: start: 20070511, end: 20070511
  2. GENTAMICIN [Suspect]
     Indication: CHOLECYSTITIS
     Dosage: (320 MG)
     Route: 042
     Dates: start: 20070512, end: 20070513
  3. LOSARTAN POTASSIUM [Suspect]
     Dosage: (50 MG)
     Route: 048
  4. ORAMORPH SR [Suspect]
     Dosage: ORAL
     Route: 048
     Dates: start: 20070512, end: 20070515
  5. FERROUS SULPHATE (FERROUS SULFATE) [Concomitant]
  6. THYROXINE SODIUM + POTASSIUM [Concomitant]
  7. IODIDE (LEVOTHRYOXINE SODIUM) [Concomitant]

REACTIONS (4)
  - DYSPNOEA [None]
  - HEPATITIS [None]
  - RASH PRURITIC [None]
  - SWOLLEN TONGUE [None]
